FAERS Safety Report 4457994-8 (Version None)
Quarter: 2004Q3

REPORT INFORMATION
  Report Type: 
  Country: None (occurrence: None)
  Receive Date: 20040922
  Receipt Date: 20040902
  Transmission Date: 20050211
  Serious: Yes (Death)
  Sender: FDA-Public Use
  Company Number: GBS040915527

PATIENT
  Age: 36 Year
  Sex: Male

DRUGS (1)
  1. PROZAC [Suspect]

REACTIONS (6)
  - OVERDOSE [None]
  - PULMONARY INFARCTION [None]
  - PULMONARY THROMBOSIS [None]
  - RASH [None]
  - SHOCK [None]
  - THERAPEUTIC RESPONSE INCREASED [None]
